FAERS Safety Report 4998268-6 (Version None)
Quarter: 2006Q2

REPORT INFORMATION
  Report Type: 
  Country: None (occurrence: None)
  Receive Date: 20060510
  Receipt Date: 20050419
  Transmission Date: 20061013
  Serious: Yes (Hospitalization)
  Sender: FDA-Public Use
  Company Number: US-MERCK-0504USA03812

PATIENT
  Age: 56 Year
  Sex: Male
  Weight: 114 kg

DRUGS (2)
  1. VIOXX [Suspect]
     Indication: PAIN IN EXTREMITY
     Route: 048
     Dates: start: 20020906, end: 20040801
  2. ZOCOR [Concomitant]
     Route: 065

REACTIONS (16)
  - ATRIAL FIBRILLATION [None]
  - BLOOD GLUCOSE INCREASED [None]
  - BRONCHITIS ACUTE VIRAL [None]
  - CARDIAC FAILURE [None]
  - CARDIAC MURMUR [None]
  - CORONARY ARTERY DISEASE [None]
  - DYSPNOEA [None]
  - GASTROOESOPHAGEAL REFLUX DISEASE [None]
  - HYPERCHOLESTEROLAEMIA [None]
  - HYPERTENSION [None]
  - MENISCUS LESION [None]
  - MITRAL VALVE INCOMPETENCE [None]
  - OSTEOARTHRITIS [None]
  - OVERDOSE [None]
  - SLEEP APNOEA SYNDROME [None]
  - SYNOVIAL CYST [None]
